FAERS Safety Report 4349272-2 (Version None)
Quarter: 2004Q1

REPORT INFORMATION
  Report Type: 
  Country: None (occurrence: None)
  Receive Date: 20040329
  Receipt Date: 20031124
  Transmission Date: 20041129
  Serious: No
  Sender: FDA-Public Use
  Company Number: USA031153380

PATIENT
  Age: 6 Year
  Sex: Male

DRUGS (3)
  1. STRATTERA [Suspect]
     Dates: start: 20031110
  2. CLONIDINE HCL [Concomitant]
  3. CONCERTA [Concomitant]

REACTIONS (2)
  - HALLUCINATION, AUDITORY [None]
  - NIGHTMARE [None]
